FAERS Safety Report 9842882 (Version 1)
Quarter: 2014Q1

REPORT INFORMATION
  Report Type: Spontaneous
  Country: US (occurrence: US)
  Receive Date: 20140124
  Receipt Date: 20140124
  Transmission Date: 20141002
  Serious: No
  Sender: FDA-Public Use
  Company Number: US-PFIZER INC-2014019489

PATIENT
  Age: 71 Year
  Sex: Female
  Weight: 63.04 kg

DRUGS (3)
  1. IBUPROFEN [Suspect]
     Indication: MUSCLE SPASMS
     Dosage: UNK(400 OR 600 MG),AS NEEDED
     Dates: start: 201307, end: 201307
  2. IBUPROFEN [Suspect]
     Indication: MYALGIA
  3. RAMIPRIL [Concomitant]
     Indication: HYPERTENSION
     Dosage: 10 MG, DAILY

REACTIONS (2)
  - Ulcer [Unknown]
  - Condition aggravated [Unknown]
